FAERS Safety Report 21524415 (Version 4)
Quarter: 2022Q4

REPORT INFORMATION
  Report Type: Report from Study
  Country: US (occurrence: US)
  Receive Date: 20221029
  Receipt Date: 20221219
  Transmission Date: 20230113
  Serious: Yes (Hospitalization)
  Sender: FDA-Public Use
  Company Number: US-NOVARTISPH-NVSC2022US242510

PATIENT
  Sex: Female
  Weight: 98.42 kg

DRUGS (4)
  1. TREPROSTINIL [Suspect]
     Active Substance: TREPROSTINIL
     Indication: Pulmonary arterial hypertension
     Dosage: 5 NG/KG/MIN, CONT
     Route: 042
     Dates: start: 20221018
  2. TREPROSTINIL [Suspect]
     Active Substance: TREPROSTINIL
     Dosage: 4 NG/KG/MIN, CONT
     Route: 042
  3. TREPROSTINIL [Suspect]
     Active Substance: TREPROSTINIL
     Dosage: 6 NG/KG/MIN, CONT
     Route: 042
  4. TADALAFIL [Suspect]
     Active Substance: TADALAFIL
     Indication: Product used for unknown indication
     Dosage: UNK
     Route: 065

REACTIONS (8)
  - Urticaria [Unknown]
  - Dermatitis contact [Unknown]
  - Gastrooesophageal reflux disease [Unknown]
  - Muscle tightness [Unknown]
  - Skin reaction [Unknown]
  - Pain in jaw [Recovered/Resolved]
  - Headache [Unknown]
  - Infusion site haemorrhage [Unknown]
